FAERS Safety Report 25034928 (Version 1)
Quarter: 2025Q1

REPORT INFORMATION
  Report Type: Spontaneous
  Country: DE (occurrence: DE)
  Receive Date: 20250304
  Receipt Date: 20250304
  Transmission Date: 20250408
  Serious: Yes (Life-Threatening, Other)
  Sender: CHEPLAPHARM
  Company Number: None

PATIENT
  Age: 12 Year
  Sex: Male
  Weight: 75 kg

DRUGS (7)
  1. OLANZAPINE [Suspect]
     Active Substance: OLANZAPINE
     Dosage: DAILY DOSE: 50 MILLIGRAM
     Dates: start: 2010, end: 2014
  2. OLANZAPINE [Suspect]
     Active Substance: OLANZAPINE
     Dosage: DAILY DOSE: 50 MILLIGRAM
     Dates: start: 2016, end: 2019
  3. HALOPERIDOL [Suspect]
     Active Substance: HALOPERIDOL
     Dosage: DAILY DOSE: 100 DROP
     Dates: start: 2010, end: 2011
  4. HALOPERIDOL [Suspect]
     Active Substance: HALOPERIDOL
     Dosage: DAILY DOSE: 100 DROP
     Dates: start: 2022, end: 2025
  5. ZUCLOPENTHIXOL [Suspect]
     Active Substance: ZUCLOPENTHIXOL
     Dosage: DAILY DOSE: 200 MILLIGRAM
     Dates: start: 2017, end: 2023
  6. ZUCLOPENTHIXOL [Suspect]
     Active Substance: ZUCLOPENTHIXOL
     Dosage: DAILY DOSE: 200 MILLIGRAM
     Dates: start: 2025
  7. PROMETHAZINE HYDROCHLORIDE [Suspect]
     Active Substance: PROMETHAZINE HYDROCHLORIDE
     Dosage: DAILY DOSE: 100 DROP
     Dates: start: 2024

REACTIONS (3)
  - Confusional state [Recovered/Resolved with Sequelae]
  - Apathy [Recovered/Resolved with Sequelae]
  - Suicidal ideation [Recovered/Resolved with Sequelae]

NARRATIVE: CASE EVENT DATE: 20110101
